FAERS Safety Report 23781188 (Version 1)
Quarter: 2024Q2

REPORT INFORMATION
  Report Type: Spontaneous
  Country: US (occurrence: US)
  Receive Date: 20240425
  Receipt Date: 20240425
  Transmission Date: 20240716
  Serious: No
  Sender: FDA-Public Use
  Company Number: US-AUROBINDO-AUR-APL-2024-001465

PATIENT
  Age: 54 Year
  Sex: Female
  Weight: 119.7 kg

DRUGS (1)
  1. LIDOCAINE HYDROCHLORIDE [Suspect]
     Active Substance: LIDOCAINE HYDROCHLORIDE
     Indication: Product used for unknown indication
     Dosage: 4.84 MILLILITER
     Route: 056

REACTIONS (2)
  - Drug ineffective [Unknown]
  - Product quality issue [Unknown]
